FAERS Safety Report 6415315-5 (Version None)
Quarter: 2009Q4

REPORT INFORMATION
  Report Type: 
  Country: None (occurrence: None)
  Receive Date: 20091027
  Receipt Date: 20091019
  Transmission Date: 20100525
  Serious: Yes (Other)
  Sender: FDA-Public Use
  Company Number: PHHY2009JP42535

PATIENT
  Age: 7 Year
  Sex: Female

DRUGS (1)
  1. CYCLOSPORINE [Suspect]
     Indication: APLASTIC ANAEMIA

REACTIONS (4)
  - CEREBRAL ARTERY STENOSIS [None]
  - CEREBRAL HAEMORRHAGE [None]
  - CEREBROVASCULAR SPASM [None]
  - HEADACHE [None]
